FAERS Safety Report 22276315 (Version 2)
Quarter: 2023Q2

REPORT INFORMATION
  Report Type: Report from Study
  Country: US (occurrence: US)
  Receive Date: 20230502
  Receipt Date: 20230505
  Transmission Date: 20230722
  Serious: Yes (Other)
  Sender: FDA-Public Use
  Company Number: US-ABBVIE-4748519

PATIENT
  Sex: Male

DRUGS (1)
  1. CREON [Suspect]
     Active Substance: PANCRELIPASE AMYLASE\PANCRELIPASE LIPASE\PANCRELIPASE PROTEASE
     Indication: Pancreatic carcinoma
     Dosage: TIME INTERVAL: 0.09090909 DAYS: STRENGTH: 24000 UNIT?FREQUENCY - 24000 UNITS CAPSULE TAKE TWO CAP...
     Route: 048
     Dates: start: 20220318, end: 202210

REACTIONS (4)
  - Pancreatic carcinoma [Unknown]
  - Illness [Unknown]
  - Pancreatic failure [Not Recovered/Not Resolved]
  - Adverse drug reaction [Not Recovered/Not Resolved]
